FAERS Safety Report 15104045 (Version 3)
Quarter: 2018Q4

REPORT INFORMATION
  Report Type: Spontaneous
  Country: EG (occurrence: EG)
  Receive Date: 20180703
  Receipt Date: 20181112
  Transmission Date: 20190204
  Serious: Yes (Death, Other)
  Sender: FDA-Public Use
  Company Number: EG-PFIZER INC-2018266051

PATIENT
  Age: 71 Year
  Sex: Male

DRUGS (5)
  1. CELEBREX [Suspect]
     Active Substance: CELECOXIB
     Indication: OSTEOARTHRITIS
     Dosage: 200 UNK, UNK
     Dates: start: 20161203
  2. DIGOXIN. [Concomitant]
     Active Substance: DIGOXIN
     Dosage: UNK
     Dates: start: 2001
  3. PIASCLEDINE [GLYCINE MAX SEED OIL;PERSEA AMERICANA OIL] [Concomitant]
     Dosage: UNK
     Dates: start: 20161203
  4. XANTHISTOP [Concomitant]
     Dosage: UNK
     Dates: start: 20161203
  5. AMLODIPINE [Concomitant]
     Active Substance: AMLODIPINE BESYLATE
     Dosage: UNK
     Dates: start: 2001

REACTIONS (2)
  - Thrombosis [Fatal]
  - Myocardial infarction [Fatal]

NARRATIVE: CASE EVENT DATE: 20161210
